FAERS Safety Report 7942330-2 (Version None)
Quarter: 2011Q4

REPORT INFORMATION
  Report Type: 
  Country: None (occurrence: None)
  Receive Date: 20111128
  Receipt Date: 20111117
  Transmission Date: 20120403
  Serious: Yes (Death, Other)
  Sender: FDA-Public Use
  Company Number: US-BAYER-200940554NA

PATIENT
  Age: 78 Year
  Sex: Male
  Weight: 77.098 kg

DRUGS (53)
  1. MEGESTROL ACETATE [Concomitant]
     Dosage: DAILY DOSE 20 MG
     Route: 048
  2. METOPROLOL TARTRATE [Concomitant]
     Dosage: 25 MG, QD
     Route: 048
  3. ZOCOR [Concomitant]
     Dosage: 40 MG, QD
     Route: 048
  4. ETODOLAC [Concomitant]
     Dosage: 300 MG, BID
     Route: 048
  5. VANCOMYCIN [Concomitant]
     Dosage: 1 G, UNK
     Route: 042
     Dates: start: 20060531
  6. ALBUMIN (HUMAN) [Concomitant]
     Dosage: 200 ML, UNK
     Dates: start: 20060531
  7. CONTRAST MEDIA [Concomitant]
     Indication: CATHETERISATION CARDIAC
     Dosage: UNK
     Dates: start: 20060526
  8. KENALOG [Concomitant]
     Dosage: PERIODICALLY
     Dates: start: 20050908
  9. DEMEROL [Concomitant]
     Dosage: UNK
     Route: 042
     Dates: start: 20060527
  10. IMDUR [Concomitant]
     Dosage: 30 MG, QD
     Route: 048
  11. NAPROXEN [Concomitant]
     Dosage: 250 MG, BID
     Route: 048
  12. PLAVIX [Concomitant]
     Dosage: 75 MG, QD
     Route: 048
  13. NAPROXEN (ALEVE) [Concomitant]
     Dosage: UNK UNK, PRN
  14. LODINE [Concomitant]
     Dosage: 300 MG, QD
     Route: 048
  15. FLUOXETINE [Concomitant]
     Dosage: 10 MG, QD
     Route: 048
  16. ANCEF [Concomitant]
     Dosage: 1 G, UNK
     Route: 042
     Dates: start: 20060531
  17. RED BLOOD CELLS [Concomitant]
     Dosage: 3 U, UNK
     Route: 042
     Dates: start: 20060531
  18. VISIPAQUE [Concomitant]
     Indication: CATHETERISATION CARDIAC
     Dosage: 54 ML, UNK
     Dates: start: 20060527, end: 20060527
  19. TRASYLOL [Suspect]
     Indication: THROMBOEMBOLECTOMY
     Dosage: 200 ML CARDIOPULMONARY BYPASS PRIME
     Route: 042
     Dates: start: 20060531, end: 20060531
  20. AMICAR [Concomitant]
     Indication: CORONARY ARTERY BYPASS
     Dosage: 10 G, UNK
     Dates: start: 20060527, end: 20060527
  21. COREG [Concomitant]
     Dosage: 12.5 MG, BID
     Route: 048
  22. EPINEPHRINE [Concomitant]
     Dosage: TITRATED
     Route: 042
     Dates: start: 20060531
  23. ZESTRIL [Concomitant]
     Dosage: 20 MG, QD
     Route: 048
  24. IBUPROFEN (ADVIL) [Concomitant]
     Dosage: UNK UNK, PRN
  25. LEXAPRO [Concomitant]
     Dosage: 10 MG, QD
     Route: 048
  26. GALANTAMINE HYDROBROMIDE [Concomitant]
     Dosage: 4 MG, BID
     Route: 048
  27. OXYBUTYNIN [Concomitant]
     Dosage: 5 MG, TID
     Route: 048
  28. RED BLOOD CELLS [Concomitant]
     Dosage: 2 U
     Route: 042
     Dates: start: 20060527
  29. TRIAMCINOLONE [Concomitant]
     Dosage: PERIODICALLY
     Route: 061
     Dates: start: 20040108
  30. ATENOLOL [Concomitant]
     Dosage: DAILY DOSE 50 MG
     Route: 048
  31. SIMVASTATIN [Concomitant]
     Dosage: DAILY DOSE 80 MG
     Route: 048
  32. VASOPRESSIN [Concomitant]
     Dosage: TITRATED
     Route: 042
     Dates: start: 20060531
  33. BUMEX [Concomitant]
     Dosage: 1 G, UNK
     Route: 042
     Dates: start: 20060531
  34. TRASYLOL [Suspect]
     Dosage: 200 ML, LOADING DOSE
     Route: 042
     Dates: start: 20060531, end: 20060531
  35. INDOCIN [Concomitant]
     Dosage: DAILY DOSE 75 MG
     Route: 048
  36. PROTONIX [Concomitant]
     Dosage: 40 MG, QD
     Route: 048
  37. PROZAC [Concomitant]
     Dosage: 10 MG, QD
     Route: 048
  38. RANITIDINE [Concomitant]
     Dosage: 150 MG, BID
     Route: 048
  39. LASIX [Concomitant]
     Dosage: 40 MG, UNK
     Route: 042
     Dates: start: 20060531
  40. AMIODARONE HCL [Concomitant]
     Dosage: TITRATED
     Route: 042
     Dates: start: 20060531
  41. PLATELETS [Concomitant]
     Dosage: 2 U, UNK
     Route: 042
     Dates: start: 20060531
  42. ACETYLSALICYLIC ACID SRT [Concomitant]
     Dosage: 81 MG, QD
     Route: 048
  43. PEPCID [Concomitant]
     Dosage: 20 MG, UNK
     Route: 042
     Dates: start: 20060531
  44. HEPARIN [Concomitant]
     Dosage: 37000 U, UNK
     Route: 042
     Dates: start: 20060531
  45. HEPARIN [Concomitant]
     Dosage: 10,000 UNITS
     Route: 042
     Dates: start: 20060531
  46. HEPARIN [Concomitant]
     Dosage: UNK
     Route: 042
     Dates: start: 20060527
  47. VERSED [Concomitant]
     Dosage: UNK
     Route: 042
     Dates: start: 20060527
  48. VECURONIUM BROMIDE [Concomitant]
     Dosage: 10 MG, UNK
     Route: 042
     Dates: start: 20060531
  49. DECADRON [Concomitant]
     Dosage: 16 MG, UNK
     Route: 042
     Dates: start: 20060531
  50. PRIMACOR [Concomitant]
     Dosage: TITRATED
     Route: 042
     Dates: start: 20060531
  51. PROTAMINE SULFATE [Concomitant]
     Dosage: 300 MG, UNK
     Route: 042
     Dates: start: 20060531
  52. FRESH FROZEN PLASMA [Concomitant]
     Dosage: 4 U, UNK
     Route: 042
     Dates: start: 20060531
  53. TRIDIL [Concomitant]
     Dosage: UNK
     Route: 042
     Dates: start: 20060527

REACTIONS (13)
  - DEATH [None]
  - RENAL FAILURE [None]
  - EMOTIONAL DISTRESS [None]
  - STRESS [None]
  - ANXIETY [None]
  - RENAL INJURY [None]
  - PAIN [None]
  - FEAR [None]
  - RENAL IMPAIRMENT [None]
  - UNEVALUABLE EVENT [None]
  - ANHEDONIA [None]
  - MULTI-ORGAN FAILURE [None]
  - INJURY [None]
